FAERS Safety Report 19780668 (Version 4)
Quarter: 2022Q1

REPORT INFORMATION
  Report Type: Report from Study
  Country: CA (occurrence: CA)
  Receive Date: 20210902
  Receipt Date: 20220225
  Transmission Date: 20220423
  Serious: Yes (Other)
  Sender: FDA-Public Use
  Company Number: CA-TAKEDA-2021TUS045903

PATIENT
  Age: 6 Year
  Sex: Female
  Weight: 21 kg

DRUGS (3)
  1. HUMAN IMMUNOGLOBULIN G [Suspect]
     Active Substance: HUMAN IMMUNOGLOBULIN G
     Indication: Primary immunodeficiency syndrome
     Dosage: 2 GRAM, 1/WEEK
     Route: 065
     Dates: start: 20210716
  2. HUMAN IMMUNOGLOBULIN G [Suspect]
     Active Substance: HUMAN IMMUNOGLOBULIN G
     Dosage: 4 GRAM, 1/WEEK
     Route: 065
     Dates: start: 20210716
  3. HUMAN IMMUNOGLOBULIN G [Suspect]
     Active Substance: HUMAN IMMUNOGLOBULIN G
     Dosage: 2 GRAM, 1/WEEK
     Route: 065
     Dates: start: 20210716

REACTIONS (16)
  - Ear infection [Unknown]
  - Strabismus [Unknown]
  - Dehydration [Not Recovered/Not Resolved]
  - Eye disorder [Not Recovered/Not Resolved]
  - Heart rate increased [Not Recovered/Not Resolved]
  - Rash papular [Not Recovered/Not Resolved]
  - Pain in extremity [Recovered/Resolved]
  - Infusion related reaction [Recovered/Resolved]
  - Hypersensitivity [Not Recovered/Not Resolved]
  - Vomiting [Not Recovered/Not Resolved]
  - Infusion site erythema [Recovered/Resolved]
  - Product dose omission issue [Unknown]
  - Swelling [Recovered/Resolved]
  - Infection [Recovered/Resolved]
  - Infusion site swelling [Recovered/Resolved]
  - Syringe issue [Unknown]

NARRATIVE: CASE EVENT DATE: 20210716
